FAERS Safety Report 5730311-9 (Version None)
Quarter: 2008Q2

REPORT INFORMATION
  Report Type: 
  Country: None (occurrence: None)
  Receive Date: 20080505
  Receipt Date: 20080505
  Transmission Date: 20081010
  Serious: Yes (Other)
  Sender: FDA-Public Use
  Company Number: None

PATIENT
  Sex: Male
  Weight: 154.223 kg

DRUGS (1)
  1. BISACODYL 20MG HALFLYTELY [Suspect]
     Indication: COLONOSCOPY
     Dosage: 20MG ONCE PO
     Route: 048
     Dates: start: 20080430, end: 20080430

REACTIONS (1)
  - VOMITING [None]
